FAERS Safety Report 6807350-X (Version None)
Quarter: 2010Q2

REPORT INFORMATION
  Report Type: 
  Country: None (occurrence: None)
  Receive Date: 20100629
  Receipt Date: 20080821
  Transmission Date: 20101027
  Serious: Yes (Other)
  Sender: FDA-Public Use
  Company Number: US-PFIZER INC-2008070205

PATIENT
  Sex: Female

DRUGS (3)
  1. XANAX [Suspect]
  2. WELLBUTRIN XL [Suspect]
     Route: 048
  3. PROZAC [Suspect]
     Route: 048

REACTIONS (1)
  - HEPATIC ENZYME INCREASED [None]
